FAERS Safety Report 21588346 (Version 1)
Quarter: 2022Q4

REPORT INFORMATION
  Report Type: Report from Study
  Country: US (occurrence: US)
  Receive Date: 20221114
  Receipt Date: 20221114
  Transmission Date: 20230112
  Serious: No
  Sender: FDA-Public Use
  Company Number: US-ABBVIE-4141191

PATIENT

DRUGS (2)
  1. HUMIRA [Suspect]
     Active Substance: ADALIMUMAB
     Indication: Rheumatoid arthritis
     Route: 058
  2. covid-19 vaccine [Concomitant]
     Indication: COVID-19 immunisation
     Dosage: COVID VACCINE, 1 IN ONCE

REACTIONS (6)
  - Musculoskeletal discomfort [Unknown]
  - Fatigue [Unknown]
  - Raynaud^s phenomenon [Unknown]
  - Insomnia [Unknown]
  - Hypoaesthesia [Unknown]
  - Limb discomfort [Unknown]
